FAERS Safety Report 7128198-5 (Version None)
Quarter: 2010Q4

REPORT INFORMATION
  Report Type: 
  Country: None (occurrence: None)
  Receive Date: 20101130
  Receipt Date: 20101118
  Transmission Date: 20110411
  Serious: Yes (Hospitalization)
  Sender: FDA-Public Use
  Company Number: US-EISAI INC.-E7389-01063-CLI-US

PATIENT
  Sex: Female
  Weight: 65 kg

DRUGS (1)
  1. E7389 (BOLD) [Suspect]
     Indication: NON-SMALL CELL LUNG CANCER
     Route: 041
     Dates: start: 20101102

REACTIONS (7)
  - ABDOMINAL DISTENSION [None]
  - DEHYDRATION [None]
  - DYSPNOEA [None]
  - FATIGUE [None]
  - NAUSEA [None]
  - ORAL PAIN [None]
  - VOMITING [None]
